FAERS Safety Report 7629067-4 (Version None)
Quarter: 2011Q3

REPORT INFORMATION
  Report Type: 
  Country: None (occurrence: None)
  Receive Date: 20110722
  Receipt Date: 20110722
  Transmission Date: 20111222
  Serious: Yes (Hospitalization, Other)
  Sender: FDA-Public Use
  Company Number: None

PATIENT
  Age: 40 Year
  Sex: Female
  Weight: 61.234 kg

DRUGS (1)
  1. LARIAM [Suspect]
     Indication: MALARIA PROPHYLAXIS
     Dosage: 1 PILL PER WEEK
     Dates: start: 19960115, end: 19960315

REACTIONS (7)
  - INSOMNIA [None]
  - PANIC ATTACK [None]
  - HALLUCINATION [None]
  - TACHYCARDIA [None]
  - SLEEP DISORDER [None]
  - ACUTE STRESS DISORDER [None]
  - BIPOLAR I DISORDER [None]
